FAERS Safety Report 17629953 (Version 1)
Quarter: 2020Q2

REPORT INFORMATION
  Report Type: Spontaneous
  Country: IT (occurrence: IT)
  Receive Date: 20200406
  Receipt Date: 20200406
  Transmission Date: 20200713
  Serious: Yes (Other)
  Sender: FDA-Public Use
  Company Number: IT-AMGEN-ITASP2020049940

PATIENT
  Age: 65 Year
  Sex: Female

DRUGS (6)
  1. CYCLOSPORINE. [Concomitant]
     Active Substance: CYCLOSPORINE
  2. ROMIPLOSTIM [Suspect]
     Active Substance: ROMIPLOSTIM
     Dosage: 7 MICROGRAM/KILOGRAM, QWK
     Route: 065
  3. ELTROMBOPAG [Concomitant]
     Active Substance: ELTROMBOPAG
     Dosage: 50 MILLIGRAM, QD
  4. ROMIPLOSTIM [Suspect]
     Active Substance: ROMIPLOSTIM
     Indication: IMMUNE THROMBOCYTOPENIA
     Dosage: 1 MICROGRAM/KILOGRAM, QWK
     Route: 065
  5. DANAZOLEN [Concomitant]
     Active Substance: DANAZOL
  6. RITUXIMAB. [Concomitant]
     Active Substance: RITUXIMAB

REACTIONS (2)
  - Intestinal haemorrhage [Unknown]
  - Therapy non-responder [Unknown]

NARRATIVE: CASE EVENT DATE: 201110
